FAERS Safety Report 8604354-1 (Version None)
Quarter: 2012Q3

REPORT INFORMATION
  Report Type: 
  Country: None (occurrence: None)
  Receive Date: 20120820
  Receipt Date: 20120810
  Transmission Date: 20120928
  Serious: Yes (Hospitalization)
  Sender: FDA-Public Use
  Company Number: AU-JNJFOC-20120806011

PATIENT
  Sex: Male
  Weight: 70 kg

DRUGS (1)
  1. CONCERTA [Suspect]
     Indication: PRODUCT USED FOR UNKNOWN INDICATION
     Route: 048
     Dates: start: 20080104, end: 20100104

REACTIONS (3)
  - WITHDRAWAL SYNDROME [None]
  - HALLUCINATION, AUDITORY [None]
  - TREATMENT NONCOMPLIANCE [None]
